FAERS Safety Report 4884638-3 (Version None)
Quarter: 2006Q1

REPORT INFORMATION
  Report Type: 
  Country: None (occurrence: None)
  Receive Date: 20060119
  Receipt Date: 20060109
  Transmission Date: 20060701
  Serious: Yes (Hospitalization, Other)
  Sender: FDA-Public Use
  Company Number: AU-ABBOTT-06P-008-0321867-00

PATIENT
  Age: 66 Year
  Sex: Male

DRUGS (2)
  1. GOPTEN [Suspect]
     Indication: DRUG USE FOR UNKNOWN INDICATION
     Route: 048
  2. ATORVASTATIN [Suspect]
     Indication: METABOLIC DISORDER
     Route: 048
     Dates: start: 20020101

REACTIONS (4)
  - ABDOMINAL PAIN UPPER [None]
  - COLON NEOPLASM [None]
  - INTUSSUSCEPTION [None]
  - LIPOMA [None]
